FAERS Safety Report 22050043 (Version 5)
Quarter: 2023Q2

REPORT INFORMATION
  Report Type: Spontaneous
  Country: US (occurrence: US)
  Receive Date: 20230301
  Receipt Date: 20230524
  Transmission Date: 20230721
  Serious: No
  Sender: FDA-Public Use
  Company Number: US-SA-SAC20230227001446

PATIENT
  Age: 41 Year
  Sex: Female

DRUGS (2)
  1. DUPIXENT [Suspect]
     Active Substance: DUPILUMAB
     Indication: Sinusitis
     Dosage: 300 MG, QOW
     Route: 058
     Dates: start: 202302
  2. DUPIXENT [Suspect]
     Active Substance: DUPILUMAB
     Indication: Nasal polyps

REACTIONS (10)
  - Injection site pain [Unknown]
  - Eye disorder [Unknown]
  - Periorbital swelling [Not Recovered/Not Resolved]
  - Fatigue [Unknown]
  - Brain fog [Unknown]
  - Abdominal pain upper [Recovered/Resolved]
  - Arthralgia [Not Recovered/Not Resolved]
  - Injection site swelling [Unknown]
  - Injection site bruising [Unknown]
  - Product use in unapproved indication [Unknown]

NARRATIVE: CASE EVENT DATE: 20230101
